FAERS Safety Report 9017198 (Version 1)
Quarter: 2013Q1

REPORT INFORMATION
  Report Type: Report from Study
  Country: FI (occurrence: FI)
  Receive Date: 20130117
  Receipt Date: 20130117
  Transmission Date: 20140127
  Serious: Yes (Hospitalization)
  Sender: FDA-Public Use
  Company Number: FI-PFIZER INC-2013018843

PATIENT
  Age: 55 Year
  Sex: Male

DRUGS (3)
  1. FLUOROURACIL [Suspect]
     Indication: COLORECTAL CANCER METASTATIC
     Dosage: 736 MG, EVERY 3 WEEKS
     Route: 040
     Dates: start: 20100125, end: 20100809
  2. FLUOROURACIL [Suspect]
     Dosage: 4416 MG, EVERY 3 WEEKS
     Route: 042
     Dates: start: 20100125, end: 20100809
  3. OXALIPLATIN [Suspect]
     Indication: COLORECTAL CANCER METASTATIC
     Dosage: 117 MG, EVERY 3 WEEKS
     Route: 042
     Dates: start: 20100125, end: 20100809

REACTIONS (1)
  - Sinusitis [Recovered/Resolved]
